FAERS Safety Report 17902292 (Version 2)
Quarter: 2022Q3

REPORT INFORMATION
  Report Type: Spontaneous
  Country: US (occurrence: US)
  Receive Date: 20200616
  Receipt Date: 20220818
  Transmission Date: 20221027
  Serious: Yes (Death, Other)
  Sender: FDA-Public Use
  Company Number: US-SAARTEMIS-SAC202006150095

PATIENT
  Age: 31 Year
  Sex: Female

DRUGS (2)
  1. ZANTAC [Suspect]
     Active Substance: RANITIDINE HYDROCHLORIDE
     Indication: Abdominal discomfort
     Dosage: 150 MG, QD
     Route: 065
     Dates: start: 201401
  2. ZANTAC [Suspect]
     Active Substance: RANITIDINE HYDROCHLORIDE
     Indication: Dyspepsia
     Dosage: 300 MG, QD
     Route: 065
     Dates: end: 201801

REACTIONS (2)
  - Renal cancer stage IV [Fatal]
  - Lung carcinoma cell type unspecified stage IV [Not Recovered/Not Resolved]

NARRATIVE: CASE EVENT DATE: 20191201
